FAERS Safety Report 22055391 (Version 1)
Quarter: 2023Q1

REPORT INFORMATION
  Report Type: Spontaneous
  Country: US (occurrence: US)
  Receive Date: 20230302
  Receipt Date: 20230302
  Transmission Date: 20230418
  Serious: Yes (Death)
  Sender: FDA-Public Use
  Company Number: US-PFIZER INC-2021051247

PATIENT
  Age: 71 Year
  Sex: Male

DRUGS (2)
  1. RAPAMUNE [Suspect]
     Active Substance: SIROLIMUS
     Indication: Heart transplant
     Dosage: 1 MG, DAILY (TAKE 2 X 0.5 MG TABLETS)
     Route: 048
  2. RAPAMUNE [Suspect]
     Active Substance: SIROLIMUS
     Dosage: 2 DF, DAILY
     Route: 048

REACTIONS (2)
  - Death [Fatal]
  - Off label use [Unknown]
